FAERS Safety Report 5670196-2 (Version None)
Quarter: 2008Q1

REPORT INFORMATION
  Report Type: 
  Country: None (occurrence: None)
  Receive Date: 20080312
  Receipt Date: 20080221
  Transmission Date: 20080703
  Serious: Yes (Hospitalization)
  Sender: FDA-Public Use
  Company Number: 6040942

PATIENT
  Age: 58 Year
  Sex: Male

DRUGS (13)
  1. DETENSIEL                  (BISOPROLOL FUMARATE) [Suspect]
     Indication: ARRHYTHMIA
     Dosage: 10 MG (10 MG, 1 IN 1 D) ORAL
     Route: 048
     Dates: start: 20071130, end: 20071218
  2. FLECAINIDE ACETATE [Suspect]
     Indication: ARRHYTHMIA
     Dosage: 1 DOSAGE FORMS (1 DOSAGE FORMS, 1 IN 1 D) ORAL
     Route: 048
     Dates: start: 20071130, end: 20071218
  3. RYTHMOL [Suspect]
     Indication: ARRHYTHMIA
     Dosage: 300 MG (300 MG, 1 IN 1 D), ORAL
     Route: 048
     Dates: start: 20071130, end: 20071218
  4. PREVISCAN (PENTOXIFYLLINE) [Concomitant]
  5. NEORAL [Concomitant]
  6. PREDNISONE [Concomitant]
  7. CELLCEPT [Concomitant]
  8. QUINAPRIL HCL [Concomitant]
  9. FERROUS SULFATE TAB [Concomitant]
  10. ALLOPURINOL [Concomitant]
  11. ZOXAN (FURAZOLIDONE, TINIDAZOLE) [Concomitant]
  12. PRAVASTATIN [Concomitant]
  13. HYPERIUM (RILMENIDINE) [Concomitant]

REACTIONS (5)
  - ATRIAL FIBRILLATION [None]
  - ATRIAL TACHYCARDIA [None]
  - BUNDLE BRANCH BLOCK LEFT [None]
  - DRUG INTERACTION [None]
  - VENTRICULAR TACHYCARDIA [None]
